FAERS Safety Report 17522265 (Version 1)
Quarter: 2020Q1

REPORT INFORMATION
  Report Type: Spontaneous
  Country: US (occurrence: US)
  Receive Date: 20200310
  Receipt Date: 20200310
  Transmission Date: 20200409
  Serious: No
  Sender: FDA-Public Use
  Company Number: NVSC2020US065685

PATIENT

DRUGS (2)
  1. FEMARA [Suspect]
     Active Substance: LETROZOLE
     Indication: PRODUCT USED FOR UNKNOWN INDICATION
     Dosage: 2.5 MG
     Route: 065
  2. IBRANCE [Suspect]
     Active Substance: PALBOCICLIB
     Indication: PRODUCT USED FOR UNKNOWN INDICATION
     Dosage: UNK
     Route: 065

REACTIONS (8)
  - Hypoacusis [Unknown]
  - Erythema [Unknown]
  - Myalgia [Unknown]
  - Pruritus [Unknown]
  - Alopecia [Unknown]
  - Food intolerance [Unknown]
  - Hot flush [Unknown]
  - Memory impairment [Unknown]
